FAERS Safety Report 13246570 (Version 1)
Quarter: 2017Q1

REPORT INFORMATION
  Report Type: Spontaneous
  Country: GB (occurrence: GB)
  Receive Date: 20170217
  Receipt Date: 20170217
  Transmission Date: 20170428
  Serious: Yes (Hospitalization, Other)
  Sender: FDA-Public Use
  Company Number: GB-TEVA-740742ACC

PATIENT
  Age: 73 Year
  Sex: Male

DRUGS (12)
  1. NORTON PHARMS WARFARIN [Interacting]
     Active Substance: WARFARIN SODIUM
  2. BISOPROLOL [Concomitant]
     Active Substance: BISOPROLOL
  3. CANDESARTAN [Concomitant]
     Active Substance: CANDESARTAN
  4. DIGOXIN. [Concomitant]
     Active Substance: DIGOXIN
  5. ALLOPURINOL. [Suspect]
     Active Substance: ALLOPURINOL
     Indication: PROPHYLAXIS
     Dosage: 200 MILLIGRAM DAILY;
     Route: 048
  6. ANADIN PARACETAMOL [Concomitant]
     Active Substance: ACETAMINOPHEN
  7. BECLOMETASONE [Concomitant]
     Active Substance: BECLOMETHASONE DIPROPIONATE
  8. CHEMILINES LANSOPRAZOLE [Concomitant]
  9. DOXAZOSIN [Concomitant]
     Active Substance: DOXAZOSIN\DOXAZOSIN MESYLATE
  10. ACTAVIS UK SALBUTAMOL [Concomitant]
  11. ACTAVIS UK SPIRONOLACTONE [Concomitant]
  12. COLCHICINE. [Concomitant]
     Active Substance: COLCHICINE

REACTIONS (2)
  - Drug interaction [Unknown]
  - International normalised ratio increased [Recovering/Resolving]
